FAERS Safety Report 7203612-5 (Version None)
Quarter: 2010Q4

REPORT INFORMATION
  Report Type: 
  Country: None (occurrence: None)
  Receive Date: 20101228
  Receipt Date: 20101228
  Transmission Date: 20110411
  Serious: No
  Sender: FDA-Public Use
  Company Number: None

PATIENT
  Age: 14 Year
  Sex: Male
  Weight: 56.6996 kg

DRUGS (1)
  1. SINGULAIR [Suspect]
     Indication: ASTHMA
     Dosage: 25 MG. ONCE PER DAY
     Dates: start: 20020901, end: 20100805

REACTIONS (4)
  - AGGRESSION [None]
  - ANGER [None]
  - MOOD ALTERED [None]
  - MYALGIA [None]
